FAERS Safety Report 7792333-6 (Version None)
Quarter: 2011Q4

REPORT INFORMATION
  Report Type: 
  Country: None (occurrence: None)
  Receive Date: 20111003
  Receipt Date: 20110928
  Transmission Date: 20120403
  Serious: Yes (Other)
  Sender: FDA-Public Use
  Company Number: US-PFIZER INC-2011231516

PATIENT
  Sex: Female
  Weight: 53.515 kg

DRUGS (3)
  1. SYNTHROID [Concomitant]
     Indication: THYROID DISORDER
     Dosage: 0.1 MG, DAILY
     Route: 048
  2. IBUPROFEN (ADVIL) [Suspect]
     Indication: ARTHRALGIA
     Dosage: UNK
     Route: 048
     Dates: start: 20090101, end: 20090101
  3. IBUPROFEN (ADVIL) [Suspect]
     Indication: ARTHRITIS

REACTIONS (1)
  - OSTEONECROSIS [None]
